FAERS Safety Report 13077836 (Version 1)
Quarter: 2017Q1

REPORT INFORMATION
  Report Type: Spontaneous
  Country: FR (occurrence: FR)
  Receive Date: 20170102
  Receipt Date: 20170102
  Transmission Date: 20170428
  Serious: Yes (Hospitalization)
  Sender: FDA-Public Use
  Company Number: FR-ROCHE-1873147

PATIENT
  Age: 12 Year
  Sex: Male

DRUGS (8)
  1. RIVOTRIL [Suspect]
     Active Substance: CLONAZEPAM
     Route: 048
     Dates: start: 20161213
  2. EPITOMAX [Concomitant]
     Active Substance: TOPIRAMATE
     Dosage: IN THE MORNING - LONG-TERM TREATMENT
     Route: 048
  3. EPITOMAX [Concomitant]
     Active Substance: TOPIRAMATE
     Dosage: IN THE EVENING - LONG-TERM TREATMENT
     Route: 048
  4. KEPPRA [Concomitant]
     Active Substance: LEVETIRACETAM
     Dosage: LONG-TERM TREATMENT
     Route: 065
  5. CALCIDOSE (FRANCE) [Concomitant]
     Active Substance: CALCIUM CARBONATE
     Dosage: LONG-TERM TREATMENT
     Route: 048
  6. RIVOTRIL [Suspect]
     Active Substance: CLONAZEPAM
     Indication: SLEEP DISORDER
     Dosage: IN THE EVENING
     Route: 048
     Dates: start: 201605, end: 20161101
  7. CIRCADIN [Suspect]
     Active Substance: MELATONIN
     Indication: SLEEP DISORDER
     Dosage: AT BEDTIME
     Route: 048
     Dates: start: 20161025
  8. GARDENAL [Concomitant]
     Active Substance: PHENOBARBITAL
     Dosage: LONG-TERM TREATMENT
     Route: 048

REACTIONS (3)
  - Off label use [Unknown]
  - Epilepsy [Not Recovered/Not Resolved]
  - Product use issue [Unknown]

NARRATIVE: CASE EVENT DATE: 201611
